FAERS Safety Report 9743234 (Version 2)
Quarter: 2015Q3

REPORT INFORMATION
  Report Type: Spontaneous
  Country: US (occurrence: US)
  Receive Date: 20131210
  Receipt Date: 20150804
  Transmission Date: 20151125
  Serious: No
  Sender: FDA-Public Use
  Company Number: US-GILEAD-2009-0025125

PATIENT
  Age: 61 Year
  Sex: Female

DRUGS (19)
  1. XANAX [Concomitant]
     Active Substance: ALPRAZOLAM
  2. ALLOPURINOL. [Concomitant]
     Active Substance: ALLOPURINOL
  3. ACAI BERRY [Concomitant]
  4. DIGITEK [Concomitant]
     Active Substance: DIGOXIN
  5. DOCUSATE [Concomitant]
     Active Substance: DOCUSATE
  6. DIPYRIDAMOLE. [Concomitant]
     Active Substance: DIPYRIDAMOLE
  7. METOLAZONE. [Concomitant]
     Active Substance: METOLAZONE
  8. TYLENOL [Concomitant]
     Active Substance: ACETAMINOPHEN
  9. ADCIRCA [Suspect]
     Active Substance: TADALAFIL
     Indication: PULMONARY ARTERIAL HYPERTENSION
     Route: 048
     Dates: start: 20091022
  10. FUROSEMIDE. [Concomitant]
     Active Substance: FUROSEMIDE
  11. NORTRIPTYLINE [Concomitant]
     Active Substance: NORTRIPTYLINE
  12. EXCEDRIN [Concomitant]
     Active Substance: ACETAMINOPHEN\ASPIRIN\CAFFEINE
  13. MAGNESIUM [Concomitant]
     Active Substance: MAGNESIUM
  14. POTASSIUM CHLORIDE. [Concomitant]
     Active Substance: POTASSIUM CHLORIDE
  15. LETAIRIS [Suspect]
     Active Substance: AMBRISENTAN
     Indication: PULMONARY ARTERIAL HYPERTENSION
     Route: 048
     Dates: start: 20080105
  16. ACYCLOVIR. [Concomitant]
     Active Substance: ACYCLOVIR
  17. LYRICA [Concomitant]
     Active Substance: PREGABALIN
  18. SIMVASTATIN. [Concomitant]
     Active Substance: SIMVASTATIN
  19. ZANTAC [Concomitant]
     Active Substance: RANITIDINE HYDROCHLORIDE

REACTIONS (2)
  - Weight increased [Not Recovered/Not Resolved]
  - Dyspnoea [Not Recovered/Not Resolved]

NARRATIVE: CASE EVENT DATE: 20091022
